FAERS Safety Report 8286386-9 (Version None)
Quarter: 2012Q2

REPORT INFORMATION
  Report Type: 
  Country: None (occurrence: None)
  Receive Date: 20120411
  Receipt Date: 20120411
  Transmission Date: 20120825
  Serious: Yes (Other)
  Sender: FDA-Public Use
  Company Number: None

PATIENT
  Age: 67 Year
  Sex: Female
  Weight: 63.5036 kg

DRUGS (1)
  1. CHLORHEXIDINE GLUCONATE [Suspect]
     Indication: GINGIVITIS
     Dosage: 1/2 OZ 2X/DAY ORAL
     Route: 048
     Dates: start: 20120306, end: 20120312

REACTIONS (3)
  - NAUSEA [None]
  - SWOLLEN TONGUE [None]
  - TONGUE DISCOLOURATION [None]
